FAERS Safety Report 6339701-7 (Version None)
Quarter: 2009Q3

REPORT INFORMATION
  Report Type: 
  Country: None (occurrence: None)
  Receive Date: 20090903
  Receipt Date: 20090820
  Transmission Date: 20100115
  Serious: Yes (Disabling)
  Sender: FDA-Public Use
  Company Number: JP-PFIZER INC-2009233483

PATIENT
  Age: 64 Year

DRUGS (5)
  1. AMLODIPINE [Suspect]
     Indication: HYPERTENSION
     Dosage: 2.5 MG, 2X/DAY
     Route: 048
     Dates: start: 20090608, end: 20090615
  2. AMLODIPINE [Concomitant]
     Dosage: 5 MG, 1X/DAY
     Route: 048
     Dates: start: 20090602, end: 20090607
  3. NORVASC [Concomitant]
     Indication: HYPERTENSION
     Dosage: 5 MG, 1X/DAY
     Route: 048
     Dates: start: 20010515, end: 20090508
  4. LIPITOR [Concomitant]
     Indication: HYPERLIPIDAEMIA
     Dosage: 10 MG, 1X/DAY
     Route: 048
     Dates: start: 20020509, end: 20090615
  5. CARNACULIN [Concomitant]
     Indication: HYPERTENSION
     Dosage: 150 IU, 1X/DAY
     Route: 048
     Dates: start: 20090608, end: 20090615

REACTIONS (1)
  - ATRIOVENTRICULAR BLOCK COMPLETE [None]
